FAERS Safety Report 5232258-3 (Version None)
Quarter: 2007Q1

REPORT INFORMATION
  Report Type: 
  Country: None (occurrence: None)
  Receive Date: 20070207
  Receipt Date: 20070126
  Transmission Date: 20070707
  Serious: Yes (Hospitalization)
  Sender: FDA-Public Use
  Company Number: PHBS2007US01775

PATIENT
  Age: 20 Year
  Sex: Female

DRUGS (6)
  1. TOBI [Suspect]
     Indication: PSEUDOMONAS INFECTION
     Dosage: 300 MG, BID
  2. CIPROFLOXACIN HCL [Concomitant]
     Dosage: 750 MG, BID
     Route: 048
  3. PULMOZYME [Concomitant]
  4. PANCREATIC ENZYMES [Concomitant]
  5. CONTRACEPTIVES UNS [Concomitant]
     Route: 048
  6. ACETAMINOPHEN [Concomitant]
     Dosage: 650 MG (3 DOSES)
     Route: 065

REACTIONS (13)
  - ANION GAP INCREASED [None]
  - AZOTAEMIA [None]
  - BLOOD BICARBONATE DECREASED [None]
  - BLOOD CREATININE INCREASED [None]
  - BLOOD UREA INCREASED [None]
  - FATIGUE [None]
  - FLANK PAIN [None]
  - FLUID RETENTION [None]
  - HYPERPHOSPHATAEMIA [None]
  - LUNG DISORDER [None]
  - RENAL ATROPHY [None]
  - RENAL FAILURE ACUTE [None]
  - URINE ANALYSIS ABNORMAL [None]
